FAERS Safety Report 19090367 (Version 1)
Quarter: 2021Q2

REPORT INFORMATION
  Report Type: Other
  Country: IT (occurrence: IT)
  Receive Date: 20210405
  Receipt Date: 20210405
  Transmission Date: 20210717
  Serious: Yes (Death, Other)
  Sender: FDA-Public Use
  Company Number: IT-VKT PHARMA PRIVATE LIMITED-000008

PATIENT
  Age: 88 Year
  Sex: Female

DRUGS (3)
  1. LEVETIRACETAM. [Suspect]
     Active Substance: LEVETIRACETAM
     Indication: ATRIAL FIBRILLATION
     Dosage: 250 MG BID
  2. RIVAROXABAN [Interacting]
     Active Substance: RIVAROXABAN
     Indication: ATRIAL FIBRILLATION
     Dosage: 15 MG
  3. FENOBARBITAL [Suspect]
     Active Substance: PHENOBARBITAL
     Indication: ATRIAL FIBRILLATION
     Dosage: 100 MG

REACTIONS (2)
  - Drug interaction [Fatal]
  - Ischaemic stroke [Fatal]
